FAERS Safety Report 14779526 (Version 1)
Quarter: 2018Q2

REPORT INFORMATION
  Report Type: Spontaneous
  Country: ES (occurrence: ES)
  Receive Date: 20180419
  Receipt Date: 20180419
  Transmission Date: 20180711
  Serious: Yes (Other)
  Sender: FDA-Public Use
  Company Number: ES-PFIZER INC-2018155485

PATIENT
  Age: 81 Year
  Sex: Female

DRUGS (1)
  1. VANCOMYCIN HCL [Suspect]
     Active Substance: VANCOMYCIN HYDROCHLORIDE
     Indication: BACTERAEMIA
     Dosage: 2000 MG, UNK
     Route: 042
     Dates: start: 20180303, end: 20180303

REACTIONS (6)
  - Oxygen saturation decreased [Recovered/Resolved]
  - Flushing [Recovered/Resolved]
  - Wheezing [Recovered/Resolved]
  - Dyspnoea [Recovered/Resolved]
  - Pruritus [Recovered/Resolved]
  - Rash generalised [Recovered/Resolved]

NARRATIVE: CASE EVENT DATE: 20180303
